FAERS Safety Report 18493564 (Version 28)
Quarter: 2024Q2

REPORT INFORMATION
  Report Type: Report from Study
  Country: CO (occurrence: CO)
  Receive Date: 20201111
  Receipt Date: 20240626
  Transmission Date: 20240715
  Serious: Yes (Life-Threatening, Hospitalization, Other)
  Sender: FDA-Public Use
  Company Number: CO-TAKEDA-CO202001769

PATIENT
  Age: 45 Year
  Sex: Male
  Weight: 75 kg

DRUGS (10)
  1. ICATIBANT [Suspect]
     Active Substance: ICATIBANT ACETATE
     Indication: Hereditary angioedema
     Dosage: 1 DOSAGE FORM
     Route: 058
     Dates: start: 20150317
  2. ICATIBANT [Suspect]
     Active Substance: ICATIBANT ACETATE
     Indication: Hereditary angioedema
     Dosage: 1 DOSAGE FORM
     Route: 058
     Dates: start: 20150317
  3. LANADELUMAB [Suspect]
     Active Substance: LANADELUMAB
     Indication: Hereditary angioedema
     Dosage: 300 MILLIGRAM, Q2WEEKS
     Route: 058
     Dates: start: 20210802
  4. LANADELUMAB [Suspect]
     Active Substance: LANADELUMAB
     Dosage: 1 DOSAGE FORM, Q2WEEKS
     Route: 065
  5. LANADELUMAB [Suspect]
     Active Substance: LANADELUMAB
     Dosage: 300 MILLIGRAM, Q2WEEKS
     Route: 058
  6. CINRYZE [Suspect]
     Active Substance: HUMAN C1-ESTERASE INHIBITOR
     Indication: Hereditary angioedema
     Dosage: 1000 INTERNATIONAL UNIT, 2/WEEK
     Route: 050
     Dates: start: 201606
  7. CINRYZE [Suspect]
     Active Substance: HUMAN C1-ESTERASE INHIBITOR
     Indication: Hereditary angioedema
     Dosage: 1000 INTERNATIONAL UNIT, 2/WEEK
     Route: 050
     Dates: start: 201606
  8. CINRYZE [Suspect]
     Active Substance: HUMAN C1-ESTERASE INHIBITOR
     Indication: Hereditary angioedema
     Dosage: 1000 INTERNATIONAL UNIT, 2/WEEK
     Route: 050
     Dates: start: 201606
  9. DANAZOL [Concomitant]
     Active Substance: DANAZOL
     Dosage: UNK
     Route: 065
  10. TRANEXAMIC ACID [Concomitant]
     Active Substance: TRANEXAMIC ACID
     Dosage: UNK
     Route: 065

REACTIONS (23)
  - Hereditary angioedema [Recovering/Resolving]
  - Hernia [Unknown]
  - Back pain [Recovering/Resolving]
  - Fall [Recovering/Resolving]
  - Mobility decreased [Recovering/Resolving]
  - Spinal cord disorder [Unknown]
  - Respiratory symptom [Recovering/Resolving]
  - Oropharyngeal pain [Recovering/Resolving]
  - Obstruction [Recovering/Resolving]
  - Pain [Recovering/Resolving]
  - Procedural pain [Unknown]
  - Depressive symptom [Unknown]
  - Anhedonia [Unknown]
  - Decreased appetite [Unknown]
  - Anxiety [Unknown]
  - Insomnia [Unknown]
  - Anger [Unknown]
  - Irritability [Unknown]
  - Emotional disorder [Unknown]
  - Thinking abnormal [Unknown]
  - Stress [Unknown]
  - Headache [Recovered/Resolved]
  - Product availability issue [Unknown]

NARRATIVE: CASE EVENT DATE: 20200701
